FAERS Safety Report 11695997 (Version 1)
Quarter: 2015Q4

REPORT INFORMATION
  Report Type: Spontaneous
  Country: US (occurrence: None)
  Receive Date: 20151103
  Receipt Date: 20151103
  Transmission Date: 20160304
  Serious: Yes (Hospitalization, Other)
  Sender: FDA-Public Use
  Company Number: None

PATIENT
  Age: 21 Year
  Sex: Male
  Weight: 94.8 kg

DRUGS (6)
  1. WELLBUTRIN [Suspect]
     Active Substance: BUPROPION HYDROCHLORIDE
     Indication: ANTIDEPRESSANT THERAPY
     Route: 048
     Dates: end: 20151030
  2. LORAZEPAM. [Concomitant]
     Active Substance: LORAZEPAM
  3. LITHIUM. [Concomitant]
     Active Substance: LITHIUM
  4. HYDROXYZINE [Concomitant]
     Active Substance: HYDROXYZINE\HYDROXYZINE HYDROCHLORIDE
  5. MINOCYCLINE\MINOCYCLINE HYDROCHLORIDE [Concomitant]
     Active Substance: MINOCYCLINE\MINOCYCLINE HYDROCHLORIDE
  6. PROPRANOLOL [Concomitant]
     Active Substance: PROPRANOLOL\PROPRANOLOL HYDROCHLORIDE

REACTIONS (9)
  - Female sexual arousal disorder [None]
  - Confusional state [None]
  - Skin discolouration [None]
  - Seizure [None]
  - Tremor [None]
  - Screaming [None]
  - Paraesthesia [None]
  - Vomiting [None]
  - Fall [None]

NARRATIVE: CASE EVENT DATE: 20151030
